FAERS Safety Report 4964461-1 (Version None)
Quarter: 2006Q2

REPORT INFORMATION
  Report Type: 
  Country: None (occurrence: None)
  Receive Date: 20060406
  Receipt Date: 20060331
  Transmission Date: 20061013
  Serious: Yes (Other)
  Sender: FDA-Public Use
  Company Number: JP-AVENTIS-200611061JP

PATIENT
  Age: 20 Year
  Sex: Male

DRUGS (3)
  1. ALLEGRA [Suspect]
     Indication: RHINITIS ALLERGIC
     Route: 048
  2. CELESTAMINE TAB [Concomitant]
     Indication: RHINITIS ALLERGIC
  3. RINDERON A [Concomitant]
     Indication: RHINITIS ALLERGIC

REACTIONS (1)
  - GASTROINTESTINAL PERFORATION [None]
